FAERS Safety Report 7238498-6 (Version None)
Quarter: 2011Q1

REPORT INFORMATION
  Report Type: 
  Country: None (occurrence: None)
  Receive Date: 20110121
  Receipt Date: 20110118
  Transmission Date: 20110831
  Serious: Yes (Hospitalization)
  Sender: FDA-Public Use
  Company Number: DE-SANOFI-AVENTIS-2010SA053717

PATIENT
  Age: 63 Year
  Sex: Female
  Weight: 95 kg

DRUGS (7)
  1. MESNA [Concomitant]
     Route: 065
  2. KEVATRIL [Concomitant]
     Route: 065
  3. CYCLOPHOSPHAMIDE [Suspect]
     Route: 041
  4. CYCLOPHOSPHAMIDE [Suspect]
     Indication: BREAST CANCER
     Route: 041
     Dates: start: 20100518, end: 20100518
  5. FORTECORTIN [Concomitant]
     Route: 065
  6. DOCETAXEL [Suspect]
     Route: 041
  7. DOCETAXEL [Suspect]
     Indication: BREAST CANCER
     Route: 041
     Dates: start: 20100518, end: 20100518

REACTIONS (1)
  - WOUND COMPLICATION [None]
